FAERS Safety Report 9755178 (Version 1)
Quarter: 2013Q4

REPORT INFORMATION
  Report Type: Spontaneous
  Country: US (occurrence: US)
  Receive Date: 20131213
  Receipt Date: 20131213
  Transmission Date: 20140711
  Serious: No
  Sender: FDA-Public Use
  Company Number: US-GLAXOSMITHKLINE-A1013364A

PATIENT
  Age: 72 Year
  Sex: Male

DRUGS (2)
  1. NICODERM CQ [Suspect]
     Indication: EX-TOBACCO USER
  2. VALIUM [Concomitant]

REACTIONS (3)
  - Nervousness [Not Recovered/Not Resolved]
  - Abnormal dreams [Not Recovered/Not Resolved]
  - Poor quality sleep [Not Recovered/Not Resolved]
